FAERS Safety Report 4574960-2 (Version None)
Quarter: 2005Q1

REPORT INFORMATION
  Report Type: 
  Country: None (occurrence: None)
  Receive Date: 20050208
  Receipt Date: 20011218
  Transmission Date: 20050727
  Serious: Yes (Death, Hospitalization)
  Sender: FDA-Public Use
  Company Number: BR-MERCK-0112BRA07917

PATIENT
  Age: 6 Year
  Sex: Female

DRUGS (2)
  1. COZAAR [Suspect]
     Indication: HYPERTENSION
     Route: 048
     Dates: start: 20011001, end: 20011201
  2. FUROSEMIDE [Concomitant]
     Indication: HYPERTENSION
     Route: 065

REACTIONS (4)
  - DIALYSIS [None]
  - HEPATIC ENCEPHALOPATHY [None]
  - HEPATIC FAILURE [None]
  - HEPATORENAL SYNDROME [None]
